FAERS Safety Report 8342755-X (Version None)
Quarter: 2012Q2

REPORT INFORMATION
  Report Type: 
  Country: None (occurrence: None)
  Receive Date: 20120503
  Receipt Date: 20100922
  Transmission Date: 20120825
  Serious: Yes (Hospitalization, Other)
  Sender: FDA-Public Use
  Company Number: BE-021107

PATIENT
  Age: 73 Year
  Sex: Female

DRUGS (14)
  1. AMLODIPINE [Concomitant]
  2. OXACILLIN [Concomitant]
  3. (CHLORAMBUCIL) [Suspect]
     Indication: CHRONIC LYMPHOCYTIC LEUKAEMIA
     Dosage: 40 MG CYCLIC
     Dates: start: 20100706, end: 20100908
  4. LEVOCETIRIZINE DIHYDROCHLORIDE [Concomitant]
  5. ENOXAPARIN [Concomitant]
  6. POVIDONE IODINE [Concomitant]
  7. LEVOTHYROXINE SODIUM [Concomitant]
  8. ACYCLOVIR [Concomitant]
  9. (COLECALCIFEROL) [Concomitant]
  10. (FLUCLOXACILLIN) [Concomitant]
  11. ACETYLCYSTEINE [Concomitant]
  12. EPHREX (ERYTHROPOIETIN) [Concomitant]
  13. (DOMPERIDONE) [Concomitant]
  14. MOXIFLOXACIN [Concomitant]

REACTIONS (7)
  - RIB FRACTURE [None]
  - BLISTER [None]
  - PHLEBITIS [None]
  - RASH [None]
  - FLANK PAIN [None]
  - CELLULITIS [None]
  - CEREBRAL HAEMORRHAGE [None]
